FAERS Safety Report 7403933-7 (Version None)
Quarter: 2011Q2

REPORT INFORMATION
  Report Type: 
  Country: None (occurrence: None)
  Receive Date: 20110408
  Receipt Date: 20110316
  Transmission Date: 20111010
  Serious: No
  Sender: FDA-Public Use
  Company Number: US-B.I. PHARMACEUTICALS,INC./RIDGEFIELD-2011-BP-08275BP

PATIENT
  Age: 70 Year
  Sex: Female

DRUGS (4)
  1. DILTIAZEM [Concomitant]
     Indication: ATRIAL FIBRILLATION
  2. CAPTOPRIL [Concomitant]
     Indication: HYPERTENSION
  3. PRADAXA [Suspect]
     Indication: ATRIAL FIBRILLATION
     Dosage: 300 MG
     Route: 048
     Dates: start: 20101201
  4. DIGOXIN [Concomitant]
     Indication: ATRIAL FIBRILLATION

REACTIONS (2)
  - ASTHENIA [None]
  - BACK PAIN [None]
